FAERS Safety Report 13738916 (Version 1)
Quarter: 2017Q3

REPORT INFORMATION
  Report Type: Spontaneous
  Country: US (occurrence: US)
  Receive Date: 20170710
  Receipt Date: 20170710
  Transmission Date: 20171127
  Serious: Yes (Other)
  Sender: FDA-Public Use
  Company Number: US-SAOL THERAPEUTICS-2017SAO00482

PATIENT
  Age: 24 Year
  Sex: Female

DRUGS (5)
  1. LIORESAL [Suspect]
     Active Substance: BACLOFEN
     Indication: MUSCLE SPASTICITY
     Dosage: 340 ?G, \DAY
     Route: 037
     Dates: start: 20170309
  2. LIORESAL [Suspect]
     Active Substance: BACLOFEN
     Dosage: 270 ?G, \DAY
     Route: 037
  3. COLACE [Concomitant]
     Active Substance: DOCUSATE SODIUM
     Dosage: 100 MG, 3X/DAY
     Route: 048
  4. PRENATAL VITAMIN WITH IRON [Concomitant]
     Dosage: 1 TABLETS, \DAY
     Route: 048
  5. BACLOFEN. [Concomitant]
     Active Substance: BACLOFEN
     Dosage: 10 MG, 3X/DAY
     Route: 048

REACTIONS (10)
  - Wound dehiscence [Recovered/Resolved]
  - Muscle spasticity [Not Recovered/Not Resolved]
  - Infection [Unknown]
  - Pregnancy [Unknown]
  - Muscle spasms [Not Recovered/Not Resolved]
  - Urinary tract infection [Unknown]
  - Exposure during pregnancy [Unknown]
  - Foreign body [Unknown]
  - Asthenia [Unknown]
  - Device failure [Unknown]

NARRATIVE: CASE EVENT DATE: 2016
